FAERS Safety Report 23248029 (Version 1)
Quarter: 2023Q4

REPORT INFORMATION
  Report Type: Spontaneous
  Country: US (occurrence: US)
  Receive Date: 20231130
  Receipt Date: 20231130
  Transmission Date: 20240109
  Serious: No
  Sender: FDA-Public Use
  Company Number: US-JNJFOC-20231139684

PATIENT
  Age: 4 Decade
  Sex: Male

DRUGS (1)
  1. MENS ROGAINE EXTRA STRENGTH [Suspect]
     Active Substance: MINOXIDIL
     Indication: Alopecia
     Dosage: FREQUENCY: TWICE A DAY
     Route: 061
     Dates: start: 20231111

REACTIONS (1)
  - Application site acne [Recovering/Resolving]

NARRATIVE: CASE EVENT DATE: 20231112
